FAERS Safety Report 7280333-4 (Version None)
Quarter: 2011Q1

REPORT INFORMATION
  Report Type: 
  Country: None (occurrence: None)
  Receive Date: 20110121
  Receipt Date: 20110113
  Transmission Date: 20110831
  Serious: Yes (Death)
  Sender: FDA-Public Use
  Company Number: 2011VX000163

PATIENT
  Age: 59 Year
  Sex: Female

DRUGS (3)
  1. CON MEDS [Concomitant]
  2. PREV MEDS [Concomitant]
  3. ACETAMINPHEN AND CODEINE PHOSPHATE [Suspect]
     Indication: PRODUCT USED FOR UNKNOWN INDICATION
     Dosage: PO
     Route: 048

REACTIONS (1)
  - DEATH [None]
